FAERS Safety Report 8999119 (Version 1)
Quarter: 2013Q1

REPORT INFORMATION
  Report Type: Spontaneous
  Country: JP (occurrence: JP)
  Receive Date: 20130103
  Receipt Date: 20130103
  Transmission Date: 20140127
  Serious: Yes (Other)
  Sender: FDA-Public Use
  Company Number: JP-JNJFOC-20120813012

PATIENT
  Sex: 0

DRUGS (2)
  1. DUROTEP MT [Suspect]
     Indication: PAIN
     Route: 062
  2. PREGABALIN [Suspect]
     Indication: PAIN
     Route: 065

REACTIONS (2)
  - Depressed level of consciousness [Recovered/Resolved]
  - Dyskinesia [Recovered/Resolved]
